FAERS Safety Report 22145205 (Version 2)
Quarter: 2023Q1

REPORT INFORMATION
  Report Type: Spontaneous
  Country: CH (occurrence: CH)
  Receive Date: 20230328
  Receipt Date: 20230331
  Transmission Date: 20230417
  Serious: Yes (Other)
  Sender: FDA-Public Use
  Company Number: CH-BRISTOL-MYERS SQUIBB COMPANY-2023-039283

PATIENT
  Age: 72 Year
  Sex: Female

DRUGS (1)
  1. ABECMA [Suspect]
     Active Substance: IDECABTAGENE VICLEUCEL
     Indication: Plasma cell myeloma
     Route: 042
     Dates: start: 20221010

REACTIONS (10)
  - Hypogammaglobulinaemia [Unknown]
  - Febrile bone marrow aplasia [Unknown]
  - Haematotoxicity [Unknown]
  - Malnutrition [Unknown]
  - Neutropenic colitis [Unknown]
  - Cellulitis [Unknown]
  - Cytokine release syndrome [Unknown]
  - Escherichia bacteraemia [Unknown]
  - Bronchopulmonary aspergillosis [Unknown]
  - Escherichia urinary tract infection [Unknown]

NARRATIVE: CASE EVENT DATE: 20221010
